FAERS Safety Report 19777567 (Version 1)
Quarter: 2021Q3

REPORT INFORMATION
  Report Type: Spontaneous
  Country: US (occurrence: US)
  Receive Date: 20210902
  Receipt Date: 20210902
  Transmission Date: 20211014
  Serious: No
  Sender: FDA-Public Use
  Company Number: US-CELLTRION INC.-2021US010909

PATIENT

DRUGS (3)
  1. TRUXIMA [Suspect]
     Active Substance: RITUXIMAB-ABBS
     Indication: IMMUNE THROMBOCYTOPENIA
     Dosage: 800 MG Q7DAYS
     Dates: start: 20210702
  2. TRUXIMA [Suspect]
     Active Substance: RITUXIMAB-ABBS
     Dosage: 800 MG Q7DAYS
     Dates: start: 20210716
  3. TRUXIMA [Suspect]
     Active Substance: RITUXIMAB-ABBS
     Indication: AORTIC ANEURYSM
     Dosage: 800 MG Q7DAYS
     Dates: start: 20210709

REACTIONS (1)
  - Off label use [Unknown]

NARRATIVE: CASE EVENT DATE: 20210702
